FAERS Safety Report 5536570-X (Version None)
Quarter: 2007Q4

REPORT INFORMATION
  Report Type: 
  Country: None (occurrence: None)
  Receive Date: 20071206
  Receipt Date: 20070920
  Transmission Date: 20080405
  Serious: Yes (Hospitalization)
  Sender: FDA-Public Use
  Company Number: US-AMGEN-QUU242277

PATIENT
  Sex: Female

DRUGS (2)
  1. ENBREL [Suspect]
     Indication: RHEUMATOID ARTHRITIS
     Route: 058
     Dates: start: 20060928
  2. ARAVA [Concomitant]

REACTIONS (5)
  - CHEST PAIN [None]
  - HEADACHE [None]
  - HYPERTENSION [None]
  - PAIN IN EXTREMITY [None]
  - PARAESTHESIA [None]
